FAERS Safety Report 5002311-8 (Version None)
Quarter: 2006Q2

REPORT INFORMATION
  Report Type: 
  Country: None (occurrence: None)
  Receive Date: 20060510
  Receipt Date: 20060502
  Transmission Date: 20061013
  Serious: Yes (Hospitalization)
  Sender: FDA-Public Use
  Company Number: 2006BI002917

PATIENT
  Age: 46 Year
  Sex: Female

DRUGS (5)
  1. AVONEX [Suspect]
     Indication: MULTIPLE SCLEROSIS
     Dosage: 30 UG; QW; IM
     Route: 030
     Dates: start: 20000301
  2. AVONEX [Suspect]
     Indication: MULTIPLE SCLEROSIS
     Dosage: 30 UG; QW; IM
     Route: 030
  3. HYDROMORPHONE HCL [Concomitant]
  4. PERCOCET [Concomitant]
  5. DURAGESIC-100 [Concomitant]

REACTIONS (6)
  - EYE MOVEMENT DISORDER [None]
  - FALL [None]
  - HEAD INJURY [None]
  - PAIN [None]
  - PELVIC FRACTURE [None]
  - PERIORBITAL HAEMATOMA [None]
